FAERS Safety Report 12812482 (Version 5)
Quarter: 2017Q1

REPORT INFORMATION
  Report Type: Report from Study
  Country: BR (occurrence: BR)
  Receive Date: 20161005
  Receipt Date: 20170110
  Transmission Date: 20170428
  Serious: Yes (Other)
  Sender: FDA-Public Use
  Company Number: PHHY2016BR136075

PATIENT
  Sex: Female
  Weight: 76 kg

DRUGS (2)
  1. FORASEQ [Suspect]
     Active Substance: BUDESONIDE\FORMOTEROL FUMARATE
     Indication: BRONCHITIS
     Dosage: 2 DF (BUDESONIDE 400 UG, FORMOTEROL 12 UG), BID (2 IN THE MORNING AND 2 AT NIGHT EVERY 12 HOURS
     Route: 055
  2. FORASEQ [Suspect]
     Active Substance: BUDESONIDE\FORMOTEROL FUMARATE
     Indication: CHRONIC OBSTRUCTIVE PULMONARY DISEASE

REACTIONS (10)
  - Pneumonia [Unknown]
  - Fatigue [Unknown]
  - Device issue [Unknown]
  - Dyspnoea [Unknown]
  - Pulmonary mass [Unknown]
  - Product quality issue [Unknown]
  - Visual impairment [Unknown]
  - Type 2 diabetes mellitus [Unknown]
  - Emphysema [Unknown]
  - Arrhythmia [Unknown]
